FAERS Safety Report 12157978 (Version 4)
Quarter: 2016Q2

REPORT INFORMATION
  Report Type: Report from Study
  Country: DE (occurrence: DE)
  Receive Date: 20160308
  Receipt Date: 20160610
  Transmission Date: 20160815
  Serious: Yes (Hospitalization)
  Sender: FDA-Public Use
  Company Number: DE-BEH-2016059781

PATIENT
  Age: 67 Year
  Sex: Female
  Weight: 72 kg

DRUGS (19)
  1. PRIVIGEN [Suspect]
     Active Substance: HUMAN IMMUNOGLOBULIN G
     Dosage: INFUSION RATE: 0.25 TO 1.6 ML/MIN
     Route: 042
     Dates: start: 20160331, end: 20160331
  2. ERYTHROPOIETIN [Concomitant]
     Active Substance: ERYTHROPOIETIN
     Route: 065
     Dates: start: 201506
  3. PRIVIGEN [Suspect]
     Active Substance: HUMAN IMMUNOGLOBULIN G
     Dosage: 30 G, QMT
     Route: 042
     Dates: start: 20160304
  4. AMLODIPIN [Concomitant]
     Active Substance: AMLODIPINE BESYLATE
  5. HYDROMORPHON [Concomitant]
     Active Substance: HYDROMORPHONE
  6. PRIVIGEN [Suspect]
     Active Substance: HUMAN IMMUNOGLOBULIN G
     Indication: SECONDARY IMMUNODEFICIENCY
     Dosage: 20 G, UNK
     Route: 042
  7. PANTOPRAZOLE [Concomitant]
     Active Substance: PANTOPRAZOLE SODIUM
  8. SIMVASTATIN. [Concomitant]
     Active Substance: SIMVASTATIN
  9. PALLADON [Concomitant]
     Active Substance: HYDROMORPHONE
     Dosage: IF NEEDED
     Route: 065
  10. ZOMETA [Concomitant]
     Active Substance: ZOLEDRONIC ACID
     Route: 065
  11. PRIVIGEN [Suspect]
     Active Substance: HUMAN IMMUNOGLOBULIN G
     Indication: PLASMACYTOMA
     Dosage: INFUSION RATE: 0.25 - 1.6 ML/MIN
     Route: 042
     Dates: start: 20160112, end: 20160112
  12. PRIVIGEN [Suspect]
     Active Substance: HUMAN IMMUNOGLOBULIN G
     Dosage: INFUSION RATE: 0.25 TO 1.6 ML/MIN
     Route: 042
     Dates: start: 20160331, end: 20160331
  13. PRIVIGEN [Suspect]
     Active Substance: HUMAN IMMUNOGLOBULIN G
     Indication: INFECTION
     Dosage: 10 G, UNK
     Route: 042
  14. VELCADE [Concomitant]
     Active Substance: BORTEZOMIB
     Indication: PLASMA CELL MYELOMA
     Route: 058
     Dates: start: 20151006, end: 20160105
  15. LANALIDOMIDE [Concomitant]
     Route: 048
  16. METFORMIN [Suspect]
     Active Substance: METFORMIN HYDROCHLORIDE
     Indication: DIABETES MELLITUS
     Dosage: TOOK FOR 3 DAYS
     Route: 065
  17. DEXAMETHASONE. [Concomitant]
     Active Substance: DEXAMETHASONE
     Indication: PLASMA CELL MYELOMA
     Route: 042
     Dates: start: 20151006, end: 20160105
  18. L-THYROXIN [Concomitant]
     Active Substance: LEVOTHYROXINE SODIUM
  19. METAMIZOL [Concomitant]
     Active Substance: METAMIZOLE SODIUM

REACTIONS (11)
  - Septic shock [Unknown]
  - Dehydration [Unknown]
  - Dialysis [Recovered/Resolved]
  - Chills [Recovered/Resolved]
  - Lactic acidosis [Unknown]
  - Coagulopathy [None]
  - Renal failure [Unknown]
  - Atrial fibrillation [Recovered/Resolved]
  - Tachycardia [Recovered/Resolved]
  - Pneumonia [Unknown]
  - Diarrhoea [Unknown]

NARRATIVE: CASE EVENT DATE: 2016
